FAERS Safety Report 7571168-3 (Version None)
Quarter: 2011Q2

REPORT INFORMATION
  Report Type: 
  Country: None (occurrence: None)
  Receive Date: 20110624
  Receipt Date: 20110620
  Transmission Date: 20111010
  Serious: Yes (Other)
  Sender: FDA-Public Use
  Company Number: BR-PFIZER INC-2011135296

PATIENT
  Age: 45 Year
  Sex: Female
  Weight: 66 kg

DRUGS (1)
  1. NORDETTE-21 [Suspect]
     Indication: CONTRACEPTION
     Dosage: [LEVONORGESTREL 0,15MG]/[ETHINYL ESTRADIOL 0,03MG], 1X/DAY (1 TABLET ONCE A DAY FOR 21 DAYS)
     Route: 048

REACTIONS (2)
  - ABNORMAL WITHDRAWAL BLEEDING [None]
  - DIABETES MELLITUS [None]
